FAERS Safety Report 9693512 (Version 1)
Quarter: 2013Q4

REPORT INFORMATION
  Report Type: Spontaneous
  Country: US (occurrence: US)
  Receive Date: 20131118
  Receipt Date: 20131118
  Transmission Date: 20140711
  Serious: Yes (Other)
  Sender: FDA-Public Use
  Company Number: US-BRISTOL-MYERS SQUIBB COMPANY-19789791

PATIENT
  Age: 52 Year
  Sex: Female
  Weight: 60.32 kg

DRUGS (1)
  1. ABILIFY [Suspect]
     Indication: DEPRESSION
     Dosage: 8 MONTHS

REACTIONS (3)
  - Loss of consciousness [Unknown]
  - Tardive dyskinesia [Unknown]
  - Drooling [Unknown]
